FAERS Safety Report 12392516 (Version 1)
Quarter: 2016Q2

REPORT INFORMATION
  Report Type: Spontaneous
  Country: GB (occurrence: GB)
  Receive Date: 20160523
  Receipt Date: 20160523
  Transmission Date: 20160815
  Serious: Yes (Other)
  Sender: FDA-Public Use
  Company Number: PHFR2016GB004007

PATIENT
  Age: 43 Year
  Sex: Female

DRUGS (1)
  1. OCTREOTIDE, LONG ACTING [Suspect]
     Active Substance: OCTREOTIDE ACETATE
     Indication: ACROMEGALY
     Dosage: 30 MG, TWICE MONTHLY
     Route: 030
     Dates: start: 2000

REACTIONS (14)
  - Arthralgia [Recovering/Resolving]
  - Inappropriate schedule of drug administration [Unknown]
  - Condition aggravated [Unknown]
  - Hyperhidrosis [Unknown]
  - Constipation [Unknown]
  - Osteoarthritis [Unknown]
  - Drug resistance [Unknown]
  - Fatigue [Recovering/Resolving]
  - Arthritis [Unknown]
  - Poor quality sleep [Recovering/Resolving]
  - Pain [Unknown]
  - Deformity [Unknown]
  - Acromegaly [Unknown]
  - Muscular weakness [Recovering/Resolving]
